FAERS Safety Report 8048825-8 (Version None)
Quarter: 2012Q1

REPORT INFORMATION
  Report Type: 
  Country: None (occurrence: None)
  Receive Date: 20120110
  Receipt Date: 20111227
  Transmission Date: 20120608
  Serious: Yes (Other)
  Sender: FDA-Public Use
  Company Number: 2011MA018156

PATIENT
  Age: 64 Year
  Sex: Female

DRUGS (8)
  1. VENLAFAXINE [Concomitant]
  2. ETIDRONATE DISODIUM [Concomitant]
  3. FLUOROURACIL [Suspect]
     Indication: COLORECTAL CANCER METASTATIC
     Dosage: 7 CYCLES
  4. PHENYTOIN [Suspect]
     Indication: EPILEPSY
     Dosage: 200 MG;TID
     Dates: start: 19940101
  5. LEUCOVORIN SODIUM [Suspect]
     Indication: COLORECTAL CANCER METASTATIC
     Dosage: 7 CYCLES
  6. IRINOTECAN HCL [Suspect]
     Indication: COLORECTAL CANCER METASTATIC
     Dosage: 7 CYCLES
  7. DOCUSATE SODIUM [Concomitant]
  8. CALCIUM CARBONATE [Concomitant]

REACTIONS (9)
  - ANTICONVULSANT DRUG LEVEL ABOVE THERAPEUTIC [None]
  - HYPERREFLEXIA [None]
  - DRUG INTERACTION [None]
  - SOMNOLENCE [None]
  - DIZZINESS [None]
  - ABASIA [None]
  - ATAXIA [None]
  - BALANCE DISORDER [None]
  - TOXICITY TO VARIOUS AGENTS [None]
